FAERS Safety Report 8811090 (Version 1)
Quarter: 2012Q4

REPORT INFORMATION
  Report Type: 
  Country: JP (occurrence: JP)
  Receive Date: 20120927
  Receipt Date: 20120927
  Transmission Date: 20130627
  Serious: Yes (Other)
  Sender: FDA-Public Use
  Company Number: PHHY2012JP075984

PATIENT

DRUGS (1)
  1. AFINITOR [Suspect]
     Indication: RENAL CELL CARCINOMA
     Dosage: 10 mg, daily
     Route: 048
     Dates: start: 201206

REACTIONS (6)
  - Paralysis [Unknown]
  - Metastases to spine [Unknown]
  - Proctalgia [Not Recovered/Not Resolved]
  - Mucous membrane disorder [None]
  - Haemorrhoids [None]
  - Nervousness [None]
